FAERS Safety Report 9184878 (Version 1)
Quarter: 2013Q1

REPORT INFORMATION
  Report Type: Report from Study
  Country: GB (occurrence: GB)
  Receive Date: 20130325
  Receipt Date: 20130325
  Transmission Date: 20140127
  Serious: Yes (Hospitalization)
  Sender: FDA-Public Use
  Company Number: GB-ROCHE-1203245

PATIENT
  Sex: Female

DRUGS (15)
  1. RITUXIMAB [Suspect]
     Indication: RHEUMATOID ARTHRITIS
     Route: 065
     Dates: start: 20110601
  2. ETORICOXIB [Concomitant]
     Route: 048
  3. FOLIC ACID [Concomitant]
     Route: 048
  4. PREDNISOLONE [Concomitant]
     Route: 048
  5. CALCEOS [Concomitant]
     Route: 048
  6. RABEPRAZOLE SODIUM [Concomitant]
     Route: 048
  7. FUROSEMIDE [Concomitant]
     Route: 048
  8. FERROUS SULPHATE DIHYDRATE [Concomitant]
     Route: 048
  9. DOMPERIDONE [Concomitant]
     Route: 048
  10. ALENDRONIC ACID [Concomitant]
     Route: 048
  11. MORPHINE [Concomitant]
     Route: 048
  12. FLUCLOXACILLIN [Concomitant]
     Dosage: 5 DAYS FURTHER (UPTO AND INC 27/NOV/2012)
     Route: 048
  13. PARACETAMOL [Concomitant]
     Route: 048
  14. ORAMORPH SR [Concomitant]
     Route: 048
  15. AMITRIPTYLINE [Concomitant]
     Dosage: 10-20 MG
     Route: 048

REACTIONS (3)
  - Limb injury [Unknown]
  - Haematoma infection [Unknown]
  - Cellulitis [Unknown]
